FAERS Safety Report 8572497-7 (Version None)
Quarter: 2012Q3

REPORT INFORMATION
  Report Type: 
  Country: None (occurrence: None)
  Receive Date: 20120806
  Receipt Date: 20120731
  Transmission Date: 20120928
  Serious: Yes (Other)
  Sender: FDA-Public Use
  Company Number: GB-ROCHE-1094369

PATIENT

DRUGS (5)
  1. AVASTIN [Suspect]
     Indication: MALIGNANT MELANOMA
     Dosage: LAST DOSE PRIOR TO SAE ON 03/JUL/2012 (ROUTE OF ADMINISTRATION AS PER PROTOCOL)
     Route: 042
     Dates: start: 20120327
  2. PROZAC [Concomitant]
     Indication: ANXIETY
     Dates: start: 20000104
  3. BENDROFLUMETHIAZIDE [Concomitant]
     Indication: HYPERTENSION
     Dates: start: 20120503
  4. RAMIPRIL [Concomitant]
     Indication: HYPERTENSION
     Dates: start: 20040518
  5. LORAZEPAM [Concomitant]
     Indication: ANXIETY
     Dates: start: 20120601

REACTIONS (1)
  - HEPATOTOXICITY [None]
